FAERS Safety Report 6307843-8 (Version None)
Quarter: 2009Q3

REPORT INFORMATION
  Report Type: 
  Country: None (occurrence: None)
  Receive Date: 20090812
  Receipt Date: 20090812
  Transmission Date: 20100115
  Serious: Yes (Hospitalization)
  Sender: FDA-Public Use
  Company Number: None

PATIENT
  Sex: Female
  Weight: 14 kg

DRUGS (1)
  1. CEFTRIAXONE [Suspect]
     Indication: OSTEOMYELITIS
     Dosage: 1050 MG Q24 HRS IV
     Route: 042
     Dates: start: 20090729, end: 20090808

REACTIONS (8)
  - BLADDER DILATATION [None]
  - GRAND MAL CONVULSION [None]
  - HAEMATOCHEZIA [None]
  - HAEMATOCRIT DECREASED [None]
  - HAEMOLYSIS [None]
  - MENTAL DISORDER [None]
  - THROMBOSIS [None]
  - VOMITING [None]
